FAERS Safety Report 9812249 (Version 1)
Quarter: 2014Q1

REPORT INFORMATION
  Report Type: Report from Study
  Country: US (occurrence: US)
  Receive Date: 20140113
  Receipt Date: 20140113
  Transmission Date: 20141002
  Serious: Yes (Other)
  Sender: FDA-Public Use
  Company Number: US-ROCHE-1330420

PATIENT
  Age: 50 Year
  Sex: Female
  Weight: 138.02 kg

DRUGS (1)
  1. NUTROPIN AQ [Suspect]
     Indication: GROWTH HORMONE DEFICIENCY
     Route: 058

REACTIONS (4)
  - Agitation [Unknown]
  - Tremor [Unknown]
  - Confusional state [Unknown]
  - Disorientation [Unknown]
